FAERS Safety Report 8204379-4 (Version None)
Quarter: 2012Q1

REPORT INFORMATION
  Report Type: 
  Country: None (occurrence: None)
  Receive Date: 20120313
  Receipt Date: 20120313
  Transmission Date: 20120608
  Serious: Yes (Other)
  Sender: FDA-Public Use
  Company Number: None

PATIENT
  Age: 63 Year
  Sex: Female
  Weight: 109 kg

DRUGS (11)
  1. LOVENOX [Suspect]
     Indication: PULMONARY EMBOLISM
     Dosage: 105 MG
     Route: 058
     Dates: start: 20111206, end: 20111210
  2. VALSARTAN [Concomitant]
  3. WARFARIN -COUDAMIN- [Concomitant]
     Indication: PULMONARY EMBOLISM
     Dosage: 5 MG, THEN 7.5 MG
     Route: 048
     Dates: start: 20111206, end: 20111210
  4. VERAPAMIL [Concomitant]
  5. HYDROCHLOROTHIAZIDE [Concomitant]
  6. ALBUTEROL [Concomitant]
  7. BUMETANIDE [Concomitant]
  8. ADVAIR INH [Concomitant]
  9. SPIRIVA INH [Concomitant]
  10. METHYLPREDNISOLONE [Concomitant]
     Route: 042
  11. ATROVENT NEB [Concomitant]

REACTIONS (2)
  - PERITONEAL HAEMORRHAGE [None]
  - RETROPERITONEAL HAEMORRHAGE [None]
